FAERS Safety Report 6759690-0 (Version None)
Quarter: 2010Q2

REPORT INFORMATION
  Report Type: 
  Country: None (occurrence: None)
  Receive Date: 20100604
  Receipt Date: 20100525
  Transmission Date: 20101027
  Serious: Yes (Hospitalization)
  Sender: FDA-Public Use
  Company Number: 2010050067

PATIENT
  Age: 18 Year
  Sex: Female
  Weight: 50 kg

DRUGS (6)
  1. FENTANYL-100 [Suspect]
     Indication: ANAESTHESIA
     Dosage: 0.45 MG
  2. DROPERIDOL [Suspect]
     Indication: PAIN
     Dosage: 2.5 MG
  3. MORPHINE [Suspect]
     Indication: PAIN
     Dosage: 10 MG, SUBCUTANEOUS
     Route: 058
  4. HALOPERIDOL [Suspect]
     Indication: ARTHRALGIA
     Dosage: 5 MCG, IV
     Route: 042
  5. PROPOFOL [Concomitant]
  6. ROPIVACAINE (ROPIVACAINE) [Concomitant]

REACTIONS (8)
  - ARTHRALGIA [None]
  - CATATONIA [None]
  - EMOTIONAL DISTRESS [None]
  - NEUROLEPTIC MALIGNANT SYNDROME [None]
  - NO THERAPEUTIC RESPONSE [None]
  - PSYCHOMOTOR HYPERACTIVITY [None]
  - RESTLESSNESS [None]
  - TACHYCARDIA [None]
